FAERS Safety Report 6220932-1 (Version None)
Quarter: 2009Q2

REPORT INFORMATION
  Report Type: 
  Country: None (occurrence: None)
  Receive Date: 20090604
  Receipt Date: 20090519
  Transmission Date: 20091009
  Serious: Yes (Hospitalization)
  Sender: FDA-Public Use
  Company Number: B0576379A

PATIENT
  Age: 71 Year
  Sex: Female

DRUGS (9)
  1. PAROXETINE HCL [Suspect]
     Indication: DEPRESSIVE SYMPTOM
     Dates: start: 20060718
  2. DILTIAZEM HYDROCHLORIDE [Concomitant]
  3. TRIMETAZIDINE HCL [Concomitant]
     Indication: DEPRESSIVE SYMPTOM
     Dates: start: 20060718
  4. LYSINE ASPIRIN [Concomitant]
  5. ROSUVASTATIN CALCIUM [Concomitant]
  6. LATANOPROST [Concomitant]
  7. ALPRAZOLAM [Concomitant]
  8. ... [Concomitant]
  9. ... [Concomitant]

REACTIONS (6)
  - BODY TEMPERATURE INCREASED [None]
  - CYTOLYTIC HEPATITIS [None]
  - KLEBSIELLA INFECTION [None]
  - MALAISE [None]
  - MORGANELLA INFECTION [None]
  - TOXIC EPIDERMAL NECROLYSIS [None]
